FAERS Safety Report 20860663 (Version 2)
Quarter: 2022Q2

REPORT INFORMATION
  Report Type: Other
  Country: CA (occurrence: None)
  Receive Date: 20220523
  Receipt Date: 20220628
  Transmission Date: 20220721
  Serious: No
  Sender: FDA-Public Use
  Company Number: CA-ROCHE-2588402

PATIENT
  Age: 22 Year
  Sex: Male

DRUGS (1)
  1. OCREVUS [Suspect]
     Active Substance: OCRELIZUMAB
     Indication: Relapsing-remitting multiple sclerosis
     Dosage: DAY 0, 14 THEN 600 MG Q6M, CONCENTRATE FOR INTRAVENOUS INFUSION
     Route: 042
     Dates: start: 20200303

REACTIONS (10)
  - Skin irritation [Recovering/Resolving]
  - Rash [Not Recovered/Not Resolved]
  - Eyelid rash [Not Recovered/Not Resolved]
  - Erythema [Not Recovered/Not Resolved]
  - Lacrimation increased [Not Recovered/Not Resolved]
  - Body temperature increased [Unknown]
  - Pruritus [Unknown]
  - Nasopharyngitis [Not Recovered/Not Resolved]
  - Influenza [Not Recovered/Not Resolved]
  - Eye symptom [Unknown]

NARRATIVE: CASE EVENT DATE: 20200405
